FAERS Safety Report 4896143-9 (Version None)
Quarter: 2006Q1

REPORT INFORMATION
  Report Type: 
  Country: None (occurrence: None)
  Receive Date: 20060131
  Receipt Date: 20060120
  Transmission Date: 20060701
  Serious: Yes (Other)
  Sender: FDA-Public Use
  Company Number: JP-JNJFOC-20051205990

PATIENT
  Sex: Male
  Weight: 66 kg

DRUGS (24)
  1. REMICADE [Suspect]
     Route: 042
  2. REMICADE [Suspect]
     Route: 042
  3. REMICADE [Suspect]
     Route: 042
  4. REMICADE [Suspect]
     Route: 042
  5. REMICADE [Suspect]
     Route: 042
  6. REMICADE [Suspect]
     Route: 042
  7. REMICADE [Suspect]
     Route: 042
  8. REMICADE [Suspect]
     Route: 042
  9. REMICADE [Suspect]
     Route: 042
  10. REMICADE [Suspect]
     Route: 042
  11. REMICADE [Suspect]
     Route: 042
  12. REMICADE [Suspect]
     Route: 042
  13. REMICADE [Suspect]
     Indication: RHEUMATOID ARTHRITIS
     Route: 042
  14. RHEUMATREX [Concomitant]
     Route: 048
  15. RHEUMATREX [Concomitant]
     Indication: RHEUMATOID ARTHRITIS
     Route: 048
  16. ADRENAL HORMONE PREPARATIONS [Concomitant]
     Indication: RHEUMATOID ARTHRITIS
  17. PREDONINE [Concomitant]
     Indication: RHEUMATOID ARTHRITIS
     Route: 048
  18. CYTOTEC [Concomitant]
     Route: 048
  19. TAGAMET [Concomitant]
     Route: 048
  20. LORCAM [Concomitant]
     Indication: RHEUMATOID ARTHRITIS
     Route: 048
  21. ALEISON [Concomitant]
     Indication: PROPHYLAXIS
     Route: 048
  22. GASTER D [Concomitant]
     Route: 048
  23. LOXONIN [Concomitant]
     Route: 048
  24. MUCOSTA [Concomitant]
     Route: 048

REACTIONS (2)
  - ANAPHYLACTOID REACTION [None]
  - INFUSION RELATED REACTION [None]
